FAERS Safety Report 9321370 (Version 1)
Quarter: 2013Q2

REPORT INFORMATION
  Report Type: Spontaneous
  Country: IT (occurrence: IT)
  Receive Date: 20130531
  Receipt Date: 20130531
  Transmission Date: 20140414
  Serious: Yes (Other)
  Sender: FDA-Public Use
  Company Number: IT-PFIZER INC-2013166612

PATIENT
  Age: 58 Year
  Sex: Female

DRUGS (2)
  1. XANAX [Suspect]
     Dosage: 10 ML, TOTAL
     Route: 048
     Dates: start: 20130513, end: 20130513
  2. PASADEN [Suspect]
     Dosage: 15 ML, TOTAL
     Route: 048
     Dates: start: 20130513, end: 20130513

REACTIONS (1)
  - Suicide attempt [Recovering/Resolving]
